FAERS Safety Report 9807083 (Version 2)
Quarter: 2014Q1

REPORT INFORMATION
  Report Type: Spontaneous
  Country: GB (occurrence: GB)
  Receive Date: 20140110
  Receipt Date: 20140120
  Transmission Date: 20141002
  Serious: Yes (Disabling)
  Sender: FDA-Public Use
  Company Number: GB-009507513-1401GBR001695

PATIENT
  Age: 57 Year
  Sex: Male

DRUGS (2)
  1. ONCOTICE [Suspect]
     Indication: BLADDER CANCER STAGE 0, WITH CANCER IN SITU
     Dosage: TOTAL DAILY DOSE: 12.5 MG VIAL, FORMULATION: BCG
     Route: 043
  2. ONCOTICE [Suspect]
     Indication: BLADDER TRANSITIONAL CELL CARCINOMA

REACTIONS (4)
  - Arthralgia [Not Recovered/Not Resolved]
  - Mobility decreased [Not Recovered/Not Resolved]
  - Oedema peripheral [Not Recovered/Not Resolved]
  - Mobility decreased [Not Recovered/Not Resolved]
